FAERS Safety Report 17707130 (Version 1)
Quarter: 2020Q2

REPORT INFORMATION
  Report Type: Spontaneous
  Country: US (occurrence: US)
  Receive Date: 20200424
  Receipt Date: 20200424
  Transmission Date: 20200714
  Serious: Yes (Death)
  Sender: FDA-Public Use
  Company Number: US-ALLERGAN-2014481US

PATIENT
  Sex: Female

DRUGS (11)
  1. SEROQUEL [Suspect]
     Active Substance: QUETIAPINE FUMARATE
     Indication: PRODUCT USED FOR UNKNOWN INDICATION
     Dosage: UNK
  2. ATIVAN [Suspect]
     Active Substance: LORAZEPAM
     Indication: PRODUCT USED FOR UNKNOWN INDICATION
     Dosage: UNK
  3. LISINOPRIL. [Concomitant]
     Active Substance: LISINOPRIL
  4. ELIQUIS [Concomitant]
     Active Substance: APIXABAN
  5. NAMENDA [Suspect]
     Active Substance: MEMANTINE HYDROCHLORIDE
     Indication: DEMENTIA
     Dosage: 10 MG, QD
     Route: 048
     Dates: start: 20190430, end: 20190525
  6. ASPIRIN. [Concomitant]
     Active Substance: ASPIRIN
  7. ATORVASTATIN [Concomitant]
     Active Substance: ATORVASTATIN
  8. VITAMIN B12 [Concomitant]
     Active Substance: CYANOCOBALAMIN
  9. FOLIC ACID. [Concomitant]
     Active Substance: FOLIC ACID
  10. FAMOTIDINE. [Concomitant]
     Active Substance: FAMOTIDINE
  11. FERROUS SULFATE. [Concomitant]
     Active Substance: FERROUS SULFATE

REACTIONS (16)
  - Myocardial infarction [Fatal]
  - Feeling abnormal [Not Recovered/Not Resolved]
  - Condition aggravated [Not Recovered/Not Resolved]
  - Confusional state [Unknown]
  - Bedridden [Not Recovered/Not Resolved]
  - Off label use [Unknown]
  - Depressed level of consciousness [Not Recovered/Not Resolved]
  - Arrhythmia [Fatal]
  - Sudden onset of sleep [Not Recovered/Not Resolved]
  - Urinary incontinence [Not Recovered/Not Resolved]
  - Hallucination, visual [Not Recovered/Not Resolved]
  - Drug interaction [Unknown]
  - Incoherent [Not Recovered/Not Resolved]
  - Coordination abnormal [Not Recovered/Not Resolved]
  - Anal incontinence [Not Recovered/Not Resolved]
  - Sedation [Not Recovered/Not Resolved]
